FAERS Safety Report 5168196-4 (Version None)
Quarter: 2006Q4

REPORT INFORMATION
  Report Type: 
  Country: None (occurrence: None)
  Receive Date: 20061208
  Receipt Date: 20061201
  Transmission Date: 20070319
  Serious: Yes (Death, Other)
  Sender: FDA-Public Use
  Company Number: US-JNJFOC-20050503435

PATIENT
  Sex: Female
  Weight: 104.33 kg

DRUGS (15)
  1. INFLIXIMAB [Suspect]
     Indication: RHEUMATOID ARTHRITIS
     Route: 042
     Dates: start: 20010413, end: 20030618
  2. ARAVA [Concomitant]
  3. CALCIUM [Concomitant]
  4. CELEBREX [Concomitant]
  5. COZAAR [Concomitant]
  6. DOXEPIN HCL [Concomitant]
  7. ENALAPRIL MALEATE [Concomitant]
  8. ENBREL [Concomitant]
  9. ENBREL [Concomitant]
  10. FOSAMAX [Concomitant]
  11. FUROSEMIDE [Concomitant]
  12. POTASSIUM ACETATE [Concomitant]
  13. SYNTHROID [Concomitant]
  14. HYDROXYCHLOROQUINE SULFATE [Concomitant]
  15. MOBIC [Concomitant]

REACTIONS (2)
  - DEATH [None]
  - LUNG ADENOCARCINOMA [None]
